APPROVED DRUG PRODUCT: METOPROLOL TARTRATE
Active Ingredient: METOPROLOL TARTRATE
Strength: 100MG
Dosage Form/Route: TABLET;ORAL
Application: A074453 | Product #002 | TE Code: AB
Applicant: RENATA PLC
Approved: Apr 27, 1995 | RLD: No | RS: No | Type: RX